FAERS Safety Report 11330837 (Version 1)
Quarter: 2015Q3

REPORT INFORMATION
  Report Type: Spontaneous
  Country: US (occurrence: US)
  Receive Date: 20150803
  Receipt Date: 20150803
  Transmission Date: 20151125
  Serious: No
  Sender: FDA-Public Use
  Company Number: US-GLAXOSMITHKLINE-US2015108686

PATIENT
  Age: 37 Year
  Sex: Female

DRUGS (1)
  1. ALLI [Suspect]
     Active Substance: ORLISTAT
     Indication: WEIGHT LOSS DIET
     Dosage: UNK
     Dates: start: 20150724, end: 20150724

REACTIONS (2)
  - Flatulence [Recovered/Resolved]
  - Rectal discharge [Recovered/Resolved]

NARRATIVE: CASE EVENT DATE: 20150724
